FAERS Safety Report 18169803 (Version 2)
Quarter: 2020Q4

REPORT INFORMATION
  Report Type: Report from Study
  Country: US (occurrence: US)
  Receive Date: 20200819
  Receipt Date: 20201015
  Transmission Date: 20210113
  Serious: No
  Sender: FDA-Public Use
  Company Number: NVSC2020US228705

PATIENT
  Sex: Female

DRUGS (1)
  1. ZOLGENSMA [Suspect]
     Active Substance: ONASEMNOGENE ABEPARVOVEC-XIOI
     Indication: SPINAL MUSCULAR ATROPHY
     Dosage: UNK, ONCE/SINGLE (INTO BLOODSTREAM VIA VEIN)
     Route: 042
     Dates: start: 20200814, end: 20200814

REACTIONS (3)
  - Diarrhoea [Unknown]
  - Vomiting [Unknown]
  - Gastrointestinal sounds abnormal [Unknown]
